FAERS Safety Report 24191522 (Version 2)
Quarter: 2024Q3

REPORT INFORMATION
  Report Type: Spontaneous
  Country: ES (occurrence: ES)
  Receive Date: 20240808
  Receipt Date: 20240814
  Transmission Date: 20241017
  Serious: Yes (Hospitalization)
  Sender: ELI LILLY AND CO
  Company Number: ES-ELI_LILLY_AND_COMPANY-ES202407020307

PATIENT
  Age: 71 Year
  Sex: Female

DRUGS (2)
  1. ABEMACICLIB [Suspect]
     Active Substance: ABEMACICLIB
     Indication: Breast cancer metastatic
     Dosage: 150 MG, UNKNOWN
     Route: 048
     Dates: start: 202404
  2. ABEMACICLIB [Suspect]
     Active Substance: ABEMACICLIB
     Dosage: 150 MG, UNKNOWN
     Route: 048

REACTIONS (12)
  - Pulmonary embolism [Recovering/Resolving]
  - Pain [Recovering/Resolving]
  - Cardiac disorder [Recovering/Resolving]
  - Decreased immune responsiveness [Recovering/Resolving]
  - Dyspnoea [Recovering/Resolving]
  - Blood phosphorus decreased [Recovering/Resolving]
  - Abdominal discomfort [Recovering/Resolving]
  - Anaemia [Recovering/Resolving]
  - Diarrhoea [Recovering/Resolving]
  - Nausea [Recovering/Resolving]
  - Fatigue [Recovering/Resolving]
  - Vomiting [Recovering/Resolving]
